FAERS Safety Report 7914224-X (Version None)
Quarter: 2011Q4

REPORT INFORMATION
  Report Type: 
  Country: None (occurrence: None)
  Receive Date: 20111115
  Receipt Date: 20111111
  Transmission Date: 20120403
  Serious: Yes (Other)
  Sender: FDA-Public Use
  Company Number: US-AMGEN-USASP2011054841

PATIENT
  Age: 81 Year
  Sex: Male
  Weight: 60.317 kg

DRUGS (8)
  1. OMEPRAZOLE [Concomitant]
     Indication: GASTROOESOPHAGEAL REFLUX DISEASE
  2. ZOCOR [Concomitant]
     Indication: BLOOD CHOLESTEROL
  3. CORTICOSTEROIDS [Concomitant]
     Indication: IDIOPATHIC THROMBOCYTOPENIC PURPURA
  4. TIMOLOL MALEATE [Concomitant]
  5. PREDNISONE [Concomitant]
     Indication: COELIAC DISEASE
  6. NAPROXEN (ALEVE) [Concomitant]
  7. NPLATE [Suspect]
     Indication: IDIOPATHIC THROMBOCYTOPENIC PURPURA
     Dosage: 300 MUG, UNK
     Dates: start: 20101027, end: 20110412
  8. TRAMADOL HCL [Concomitant]

REACTIONS (2)
  - THROMBOCYTOPENIA [None]
  - FATIGUE [None]
